FAERS Safety Report 14172066 (Version 1)
Quarter: 2017Q4

REPORT INFORMATION
  Report Type: Spontaneous
  Country: FR (occurrence: FR)
  Receive Date: 20171108
  Receipt Date: 20171108
  Transmission Date: 20180321
  Serious: Yes (Other)
  Sender: FDA-Public Use
  Company Number: FR-MERCK KGAA-2033617

PATIENT
  Age: 28 Year
  Sex: Female

DRUGS (1)
  1. NOVOTHYROX [Suspect]
     Active Substance: LEVOTHYROXINE SODIUM
     Indication: AUTOIMMUNE THYROIDITIS
     Route: 048
     Dates: start: 2017

REACTIONS (13)
  - Nausea [Not Recovered/Not Resolved]
  - Chest pain [Not Recovered/Not Resolved]
  - Depressed mood [Not Recovered/Not Resolved]
  - Constipation [Not Recovered/Not Resolved]
  - Hunger [Not Recovered/Not Resolved]
  - Headache [Not Recovered/Not Resolved]
  - Fatigue [Not Recovered/Not Resolved]
  - Psychiatric symptom [Not Recovered/Not Resolved]
  - Irritability [Not Recovered/Not Resolved]
  - Diffuse alopecia [Not Recovered/Not Resolved]
  - Asthenia [Not Recovered/Not Resolved]
  - Visual impairment [Not Recovered/Not Resolved]
  - Aggression [Not Recovered/Not Resolved]

NARRATIVE: CASE EVENT DATE: 20170501
